FAERS Safety Report 17133016 (Version 1)
Quarter: 2019Q4

REPORT INFORMATION
  Report Type: Report from Study
  Country: ES (occurrence: ES)
  Receive Date: 20191210
  Receipt Date: 20191210
  Transmission Date: 20200122
  Serious: Yes (Death, Hospitalization)
  Sender: FDA-Public Use
  Company Number: ES-TEVA-2019-ES-1148193

PATIENT
  Age: 82 Year
  Sex: Male

DRUGS (6)
  1. ATORVASTATINA (7400A) [Suspect]
     Active Substance: ATORVASTATIN
     Indication: DYSLIPIDAEMIA
     Dosage: 10 MG
     Route: 048
     Dates: start: 20101105, end: 20171027
  2. SALBUTAMOL (2297A) [Concomitant]
     Active Substance: ALBUTEROL
     Indication: CHRONIC OBSTRUCTIVE PULMONARY DISEASE
     Route: 055
     Dates: start: 20101105, end: 20171027
  3. PROSCAR 5 MG COMPRIMIDOS RECUBIERTOS CON PEL?CULA , 28 COMPRIMIDOS [Concomitant]
     Indication: BENIGN PROSTATIC HYPERPLASIA
     Dosage: 5 MG
     Route: 048
     Dates: start: 20150529, end: 20171027
  4. ACENOCUMAROL (220A) [Interacting]
     Active Substance: ACENOCOUMAROL
     Indication: ATRIAL FIBRILLATION
     Route: 048
     Dates: start: 20110127, end: 20171027
  5. OMNIC 0,4 MG CAPSULAS DE LIBERACION MODIFICADA , 30 C?PSULAS [Concomitant]
     Indication: BENIGN PROSTATIC HYPERPLASIA
     Dosage: 1.4 MG
     Route: 048
     Dates: start: 20150529, end: 20171027
  6. AMLODIPINO (2503A) [Concomitant]
     Active Substance: AMLODIPINE BESYLATE
     Indication: HYPERTENSION
     Dosage: 5 MG
     Route: 048
     Dates: start: 20120306, end: 20171027

REACTIONS (2)
  - Drug interaction [Unknown]
  - Haemorrhage intracranial [Fatal]

NARRATIVE: CASE EVENT DATE: 20171026
